FAERS Safety Report 6944865-8 (Version None)
Quarter: 2010Q3

REPORT INFORMATION
  Report Type: 
  Country: None (occurrence: None)
  Receive Date: 20100827
  Receipt Date: 20100818
  Transmission Date: 20110219
  Serious: Yes (Hospitalization)
  Sender: FDA-Public Use
  Company Number: JP-ASTRAZENECA-2010SE34854

PATIENT
  Age: 79 Year
  Sex: Male

DRUGS (1)
  1. SYMBICORT [Suspect]
     Dosage: NUMBER OF SEPARATE DOSAGES UNKNOWN, 2 DF
     Route: 055

REACTIONS (2)
  - ANAEMIA [None]
  - PANCYTOPENIA [None]
